FAERS Safety Report 9858801 (Version 1)
Quarter: 2014Q1

REPORT INFORMATION
  Report Type: Spontaneous
  Country: US (occurrence: None)
  Receive Date: 20140129
  Receipt Date: 20140129
  Transmission Date: 20141002
  Serious: Yes (Death)
  Sender: FDA-Public Use
  Company Number: 2014AP000591

PATIENT
  Age: 38 Year
  Sex: Male

DRUGS (1)
  1. METFORMIN [Suspect]
     Dosage: ; PO
     Route: 048

REACTIONS (5)
  - Toxicity to various agents [None]
  - Cardio-respiratory arrest [None]
  - Intentional overdose [None]
  - Completed suicide [None]
  - Lactic acidosis [None]
